FAERS Safety Report 4541916-5 (Version None)
Quarter: 2004Q4

REPORT INFORMATION
  Report Type: 
  Country: None (occurrence: None)
  Receive Date: 20041229
  Receipt Date: 20041229
  Transmission Date: 20050328
  Serious: No
  Sender: FDA-Public Use
  Company Number: None

PATIENT
  Age: 80 Year
  Sex: Female
  Weight: 89.3586 kg

DRUGS (7)
  1. HUMIRA [Suspect]
     Indication: RHEUMATOID ARTHRITIS
     Dates: start: 20030401, end: 20041101
  2. PREMPRO [Suspect]
     Indication: MENOPAUSAL SYMPTOMS
     Dates: start: 19950101, end: 20041101
  3. METHOTREXATE [Concomitant]
  4. FELDENE [Concomitant]
  5. ACIPHEX [Concomitant]
  6. ATENOLOL [Concomitant]
  7. NORVASC [Concomitant]

REACTIONS (1)
  - BREAST CANCER [None]
